FAERS Safety Report 8182611-3 (Version None)
Quarter: 2012Q1

REPORT INFORMATION
  Report Type: 
  Country: None (occurrence: None)
  Receive Date: 20120305
  Receipt Date: 20120222
  Transmission Date: 20120608
  Serious: Yes (Other)
  Sender: FDA-Public Use
  Company Number: FI-BAYER-2012-018075

PATIENT
  Age: 18 Year
  Sex: Female

DRUGS (4)
  1. YAZ [Suspect]
     Indication: CONTRACEPTION
     Dosage: UNK
     Route: 048
     Dates: start: 20090301, end: 20111201
  2. MENINGOCOCCAL GROUP B RLP2086 VACCINE OR PLACEBO [Suspect]
     Dosage: UNK
     Route: 030
     Dates: start: 20110516, end: 20110516
  3. MENINGOCOCCAL GROUP B RLP2086 VACCINE OR PLACEBO [Suspect]
     Indication: IMMUNISATION
     Dosage: UNK
     Route: 030
     Dates: start: 20111020, end: 20111020
  4. MENINGOCOCCAL GROUP B RLP2086 VACCINE OR PLACEBO [Suspect]
     Dosage: UNK
     Route: 030
     Dates: start: 20110621, end: 20110621

REACTIONS (3)
  - VAGINAL HAEMORRHAGE [None]
  - ABORTION SPONTANEOUS INCOMPLETE [None]
  - PREGNANCY ON ORAL CONTRACEPTIVE [None]
